FAERS Safety Report 8941161 (Version 1)
Quarter: 2012Q4

REPORT INFORMATION
  Report Type: Report from Study
  Country: GB (occurrence: US)
  Receive Date: 20121203
  Receipt Date: 20121203
  Transmission Date: 20130627
  Serious: Yes (Hospitalization, Other)
  Sender: FDA-Public Use
  Company Number: US-BRISTOL-MYERS SQUIBB COMPANY-17155854

PATIENT
  Age: 68 Year
  Sex: Male
  Weight: 78 kg

DRUGS (10)
  1. TAXOL [Suspect]
     Indication: LUNG NEOPLASM MALIGNANT
     Dosage: Prior to event: 6Se07
     Route: 042
     Dates: start: 20070523
  2. CARBOPLATIN [Suspect]
     Indication: LUNG NEOPLASM MALIGNANT
     Dosage: 1 df = 6 AUC. Prior to event: 6Se07
     Route: 042
     Dates: start: 20070523
  3. AVASTIN [Suspect]
     Indication: LUNG NEOPLASM MALIGNANT
     Route: 042
     Dates: start: 20070523, end: 20071018
  4. COUMADIN [Suspect]
  5. FENTANYL CITRATE [Concomitant]
     Dates: start: 20070816
  6. HALCION [Concomitant]
     Dosage: At bedtime
     Dates: start: 20070531
  7. COMPAZINE [Concomitant]
     Dates: start: 20070816
  8. MIRALAX [Concomitant]
  9. ZOMETA [Concomitant]
  10. TRIAZOLAM [Concomitant]
     Dates: start: 20070816

REACTIONS (2)
  - Deep vein thrombosis [Recovered/Resolved]
  - Toxicity to various agents [Unknown]
